FAERS Safety Report 14952358 (Version 8)
Quarter: 2018Q4

REPORT INFORMATION
  Report Type: Spontaneous
  Country: US (occurrence: US)
  Receive Date: 20180530
  Receipt Date: 20181231
  Transmission Date: 20190204
  Serious: Yes (Other)
  Sender: FDA-Public Use
  Company Number: US-PFIZER INC-2018215355

PATIENT
  Age: 66 Year
  Sex: Female

DRUGS (3)
  1. IBRANCE [Suspect]
     Active Substance: PALBOCICLIB
     Indication: BREAST CANCER METASTATIC
     Dosage: 125 MG, CYCLIC (ONCE A DAY)
     Route: 048
     Dates: start: 20180405
  2. IBRANCE [Suspect]
     Active Substance: PALBOCICLIB
     Dosage: 125 MG, CYCLIC (DAILY FOR 21 DAYS)
     Route: 048
     Dates: start: 20180503
  3. IBRANCE [Suspect]
     Active Substance: PALBOCICLIB
     Dosage: 125 MG, CYCLIC (21 DAYS ON THEN 7 OFF/DAY 1-21/28)
     Route: 048
     Dates: start: 20180504

REACTIONS (21)
  - Rash [Unknown]
  - Insomnia [Unknown]
  - Skin irritation [Unknown]
  - Skin laceration [Unknown]
  - Stomatitis [Unknown]
  - Increased tendency to bruise [Unknown]
  - Epistaxis [Unknown]
  - Nasopharyngitis [Unknown]
  - Nail disorder [Unknown]
  - Pyrexia [Unknown]
  - Plantar fasciitis [Unknown]
  - Nausea [Unknown]
  - Fatigue [Unknown]
  - Muscle spasms [Unknown]
  - Alopecia [Unknown]
  - Dry skin [Unknown]
  - Hypoaesthesia [Unknown]
  - Paraesthesia [Unknown]
  - Blood glucose increased [Unknown]
  - Gastrointestinal disorder [Unknown]
  - Skin disorder [Unknown]

NARRATIVE: CASE EVENT DATE: 20180524
